FAERS Safety Report 17216696 (Version 1)
Quarter: 2019Q4

REPORT INFORMATION
  Report Type: Spontaneous
  Country: FR (occurrence: FR)
  Receive Date: 20191230
  Receipt Date: 20191230
  Transmission Date: 20200122
  Serious: Yes (Other)
  Sender: FDA-Public Use
  Company Number: FR-BAXTER-2019BAX025956

PATIENT
  Age: 80 Year
  Sex: Female
  Weight: 74 kg

DRUGS (10)
  1. BISOPROLOL HEMIFUMARATE [Concomitant]
     Active Substance: BISOPROLOL FUMARATE
     Indication: HYPERTENSION
     Route: 048
  2. KARDEGIC [Concomitant]
     Active Substance: ASPIRIN DL-LYSINE
     Indication: PLATELET AGGREGATION INHIBITION
     Dosage: KARDEGIC 75 MG POWDER FOR ORAL SOLUTION IN SACHET
     Route: 048
  3. SERC [Concomitant]
     Indication: VERTIGO
     Dosage: SERC 8MG TABLET
     Route: 048
  4. METRONIDAZOLE BAXTER 0,5 POUR CENT, SOLUTION INJECTABLE EN POCHE [Suspect]
     Active Substance: METRONIDAZOLE
     Indication: LUNG DISORDER
     Route: 065
     Dates: start: 201803, end: 201803
  5. AMOXICILLIN BASE [Suspect]
     Active Substance: AMOXICILLIN
     Indication: LUNG DISORDER
     Route: 065
     Dates: start: 201803, end: 201803
  6. CEFTRIAXONE. [Suspect]
     Active Substance: CEFTRIAXONE
     Indication: LUNG DISORDER
     Route: 065
     Dates: start: 201803, end: 201803
  7. METFORMINE ARROW [Concomitant]
     Active Substance: METFORMIN HYDROCHLORIDE
     Indication: TYPE 2 DIABETES MELLITUS
     Dosage: METFORMIN ARROW 500 MG COATED TABLET
     Route: 048
  8. CLAVULANIC ACID [Suspect]
     Active Substance: CLAVULANIC ACID
     Indication: LUNG DISORDER
     Route: 065
     Dates: start: 201803, end: 201803
  9. RANITIDINE HYDROCHLORIDE. [Concomitant]
     Active Substance: RANITIDINE HYDROCHLORIDE
     Indication: GASTRIC ULCER
     Route: 048
  10. VALSARTAN. [Concomitant]
     Active Substance: VALSARTAN
     Indication: HYPERTENSION
     Route: 048

REACTIONS (2)
  - Hepatocellular injury [Recovered/Resolved]
  - Cholestasis [Recovering/Resolving]

NARRATIVE: CASE EVENT DATE: 20180316
